FAERS Safety Report 9638710 (Version 2)
Quarter: 2013Q4

REPORT INFORMATION
  Report Type: Spontaneous
  Country: US (occurrence: US)
  Receive Date: 20131022
  Receipt Date: 20131126
  Transmission Date: 20140711
  Serious: Yes (Other)
  Sender: FDA-Public Use
  Company Number: US-CELGENEUS-163-POMAL-13103361

PATIENT
  Age: 87 Year
  Sex: Male

DRUGS (2)
  1. POMALYST [Suspect]
     Indication: PLASMA CELL MYELOMA
     Dosage: 4 MILLIGRAM
     Route: 048
     Dates: start: 20130923
  2. POMALYST [Suspect]
     Dosage: 1 MILLIGRAM
     Route: 048
     Dates: start: 20131016, end: 20131106

REACTIONS (2)
  - Blood iron decreased [Not Recovered/Not Resolved]
  - Rash pruritic [Not Recovered/Not Resolved]
